FAERS Safety Report 8913152 (Version 1)
Quarter: 2012Q4

REPORT INFORMATION
  Report Type: 
  Country: US (occurrence: US)
  Receive Date: 20121119
  Receipt Date: 20121119
  Transmission Date: 20130627
  Serious: Yes (Other)
  Sender: FDA-Public Use
  Company Number: PHEH2012US022389

PATIENT
  Sex: Female

DRUGS (1)
  1. RECLAST [Suspect]
     Route: 042

REACTIONS (7)
  - Osteonecrosis of jaw [Unknown]
  - Bone disorder [Unknown]
  - Bone loss [Unknown]
  - Ear pain [Unknown]
  - Pain in jaw [Unknown]
  - Gingival pain [Unknown]
  - Jaw disorder [Unknown]
